FAERS Safety Report 4455806-X (Version None)
Quarter: 2004Q3

REPORT INFORMATION
  Report Type: 
  Country: None (occurrence: None)
  Receive Date: 20040917
  Receipt Date: 20040826
  Transmission Date: 20050211
  Serious: Yes (Hospitalization)
  Sender: FDA-Public Use
  Company Number: EWC040840381

PATIENT
  Age: 31 Year
  Sex: Female

DRUGS (2)
  1. OLANZAPINE [Suspect]
     Indication: SCHIZOPHRENIA
     Dosage: 10 MG/DAY
     Dates: start: 20040501
  2. OLANZAPINE [Concomitant]

REACTIONS (2)
  - METRORRHAGIA [None]
  - PELVIC INFLAMMATORY DISEASE [None]
